FAERS Safety Report 13762967 (Version 1)
Quarter: 2017Q3

REPORT INFORMATION
  Report Type: Spontaneous
  Country: US (occurrence: US)
  Receive Date: 20170718
  Receipt Date: 20170718
  Transmission Date: 20171127
  Serious: No
  Sender: FDA-Public Use
  Company Number: None

PATIENT
  Age: 63 Year
  Sex: Male
  Weight: 96.75 kg

DRUGS (2)
  1. ELBASVIR/GRAZOPREVIR [Concomitant]
     Active Substance: ELBASVIR\GRAZOPREVIR
  2. SOVALDI [Suspect]
     Active Substance: SOFOSBUVIR
     Indication: HEPATITIS C
     Dates: start: 20170512, end: 20170616

REACTIONS (1)
  - Irritability [None]

NARRATIVE: CASE EVENT DATE: 20170616
